FAERS Safety Report 25108370 (Version 2)
Quarter: 2025Q1

REPORT INFORMATION
  Report Type: Spontaneous
  Country: CU (occurrence: CU)
  Receive Date: 20250322
  Receipt Date: 20250328
  Transmission Date: 20250409
  Serious: Yes (Hospitalization)
  Sender: ROCHE
  Company Number: CU-ROCHE-10000235791

PATIENT
  Age: 19 Year
  Sex: Male
  Weight: 53 kg

DRUGS (2)
  1. EMICIZUMAB [Suspect]
     Active Substance: EMICIZUMAB
     Indication: Factor VIII deficiency
     Route: 058
     Dates: start: 20240618
  2. EMICIZUMAB [Suspect]
     Active Substance: EMICIZUMAB
     Route: 058
     Dates: start: 20240618

REACTIONS (1)
  - Hyphaema [Recovering/Resolving]

NARRATIVE: CASE EVENT DATE: 20250105
